FAERS Safety Report 9121066 (Version 1)
Quarter: 2013Q1

REPORT INFORMATION
  Report Type: Report from Study
  Country: JP (occurrence: JP)
  Receive Date: 20130226
  Receipt Date: 20130226
  Transmission Date: 20140127
  Serious: Yes (Hospitalization)
  Sender: FDA-Public Use
  Company Number: JP-PFIZER INC-2010129657

PATIENT
  Age: 51 Year
  Sex: Male
  Weight: 72.7 kg

DRUGS (13)
  1. AXITINIB [Suspect]
     Indication: METASTATIC RENAL CELL CARCINOMA
     Dosage: 3 MG, 2X/DAY
     Route: 048
     Dates: start: 20080714, end: 20101010
  2. ZYLORIC ^GLAXO WELLCOME^ [Concomitant]
     Indication: HYPERURICAEMIA
     Dosage: 100 MG, 1X/DAY
     Route: 048
     Dates: start: 20090908
  3. LEVOTHYROXINE SODIUM [Concomitant]
     Indication: HYPOTHYROIDISM
     Dosage: 250 UG, 1X/DAY
     Route: 048
     Dates: start: 20100629
  4. LOPEMIN [Concomitant]
     Indication: DIARRHOEA
     Dosage: 2 MG, 2X/DAY
     Route: 048
     Dates: start: 20100417, end: 20101022
  5. BACTERIA NOS [Concomitant]
     Indication: DIARRHOEA
     Dosage: 3 G, 3X/DAY
     Route: 048
     Dates: start: 20100420, end: 20101010
  6. BLOPRESS [Concomitant]
     Indication: HYPERTENSION
     Dosage: MORNING: 8MG, EVENING: 4MG
     Route: 048
     Dates: start: 20100319, end: 20101010
  7. RENIVACE [Concomitant]
     Indication: HYPERTENSION
     Dosage: 5 MG, 1X/DAY
     Route: 048
     Dates: start: 20100319, end: 20101010
  8. AMLODIN [Concomitant]
     Indication: HYPERTENSION
     Dosage: 10 MG, 1X/DAY
     Route: 048
     Dates: start: 20100728, end: 20101010
  9. HIRUDOID [Concomitant]
     Indication: PALMAR-PLANTAR ERYTHRODYSAESTHESIA SYNDROME
     Dosage: UNK
     Route: 061
     Dates: start: 20101020
  10. RINDERON-VG [Concomitant]
     Indication: PALMAR-PLANTAR ERYTHRODYSAESTHESIA SYNDROME
     Dosage: UNK
     Route: 061
     Dates: start: 20091208
  11. URSO [Concomitant]
     Indication: HEPATIC FUNCTION ABNORMAL
     Dosage: 50 MG, 3X/DAY
     Route: 048
     Dates: start: 20100907
  12. RABEPRAZOLE SODIUM [Concomitant]
     Dosage: UNK
     Dates: start: 20090821
  13. REBAMIPIDE [Concomitant]
     Dosage: UNK
     Dates: start: 20090821

REACTIONS (3)
  - Diarrhoea [Recovered/Resolved]
  - Vomiting [Recovered/Resolved]
  - Renal failure acute [Recovered/Resolved]
